FAERS Safety Report 25735571 (Version 1)
Quarter: 2025Q3

REPORT INFORMATION
  Report Type: Spontaneous
  Country: US (occurrence: None)
  Receive Date: 20250827
  Receipt Date: 20250827
  Transmission Date: 20251021
  Serious: Yes (Other)
  Sender: FDA-CTU
  Company Number: None

PATIENT
  Age: 61 Year
  Sex: Female
  Weight: 80.55 kg

DRUGS (2)
  1. COSMETICS [Suspect]
     Active Substance: COSMETICS
     Indication: Tooth whitening
     Dosage: OTHER STRENGTH : LEVEL;?OTHER QUANTITY : 14 STRIP;?FREQUENCY : AT BEDTIME;?OTHER ROUTE : APPLIED TO TEETH;?
     Route: 050
     Dates: start: 20250821, end: 20250826
  2. VITAMINS [Concomitant]
     Active Substance: VITAMINS

REACTIONS (1)
  - Tooth discolouration [None]

NARRATIVE: CASE EVENT DATE: 20250827
